FAERS Safety Report 7895665-6 (Version None)
Quarter: 2011Q4

REPORT INFORMATION
  Report Type: 
  Country: None (occurrence: None)
  Receive Date: 20111106
  Receipt Date: 20110830
  Transmission Date: 20120403
  Serious: No
  Sender: FDA-Public Use
  Company Number: US-AMGEN-USASP2011044300

PATIENT
  Age: 47 Year
  Sex: Male
  Weight: 77.098 kg

DRUGS (11)
  1. AMBIEN [Concomitant]
     Dosage: 5 MG, UNK
  2. ENBREL [Suspect]
     Indication: PRODUCT USED FOR UNKNOWN INDICATION
     Dosage: 50 MG, QWK
     Route: 058
  3. ATENOLOL [Concomitant]
     Dosage: 25 MG, UNK
  4. CYMBALTA [Concomitant]
     Dosage: 20 MG, UNK
  5. REQUIP [Concomitant]
     Dosage: 0.5 MG, UNK
  6. OXYCONTIN [Concomitant]
     Dosage: 50 MG, UNK
  7. VALIUM [Concomitant]
     Dosage: 2 MG, UNK
  8. WELLBUTRIN [Concomitant]
     Dosage: 75 MG, UNK
  9. TRAZODONE HYDROCHLORIDE [Concomitant]
     Dosage: 50 MG, UNK
  10. CARBIDOPA AND LEVODOPA [Concomitant]
     Dosage: UNK
  11. ZYRTEC [Concomitant]
     Dosage: 5 MG, UNK

REACTIONS (3)
  - NAUSEA [None]
  - ABDOMINAL PAIN [None]
  - DIARRHOEA [None]
